FAERS Safety Report 5401470-2 (Version None)
Quarter: 2007Q3

REPORT INFORMATION
  Report Type: 
  Country: None (occurrence: None)
  Receive Date: 20070731
  Receipt Date: 20070720
  Transmission Date: 20080115
  Serious: Yes (Other)
  Sender: FDA-Public Use
  Company Number: US-ROCHE-483946

PATIENT
  Sex: Male
  Weight: 2.6 kg

DRUGS (3)
  1. COPEGUS [Suspect]
     Indication: DRUG USE FOR UNKNOWN INDICATION
     Dates: start: 20050927, end: 20060307
  2. PEGASYS [Suspect]
     Indication: DRUG USE FOR UNKNOWN INDICATION
     Dates: start: 20050927, end: 20060307
  3. PRENATAL VITAMINS [Concomitant]
     Indication: PREGNANCY
     Dates: start: 20060701

REACTIONS (3)
  - ALPHA 1 FOETOPROTEIN ABNORMAL [None]
  - LIVE BIRTH [None]
  - NO ADVERSE REACTION [None]
